FAERS Safety Report 9135002 (Version 4)
Quarter: 2015Q2

REPORT INFORMATION
  Report Type: Spontaneous
  Country: FR (occurrence: FR)
  Receive Date: 20130304
  Receipt Date: 20150602
  Transmission Date: 20150821
  Serious: Yes (Other)
  Sender: FDA-Public Use
  Company Number: FR-PFIZER INC-2013070371

PATIENT
  Age: 35 Year
  Sex: Male

DRUGS (2)
  1. SOLU-MEDROL [Suspect]
     Active Substance: METHYLPREDNISOLONE SODIUM SUCCINATE
     Dosage: 1 G
     Route: 040
     Dates: start: 20080908, end: 20080912
  2. RISPERDAL [Interacting]
     Active Substance: RISPERIDONE
     Indication: BIPOLAR DISORDER
     Dosage: 2 MG

REACTIONS (12)
  - Head injury [Unknown]
  - Fall [Unknown]
  - Spinal fracture [Unknown]
  - Panic attack [Unknown]
  - Decreased appetite [Unknown]
  - Confusional state [Unknown]
  - Paraplegia [Unknown]
  - Anxiety [Unknown]
  - Drug interaction [Unknown]
  - Insomnia [Unknown]
  - Dislocation of vertebra [Unknown]
  - Delirium [Unknown]

NARRATIVE: CASE EVENT DATE: 20080922
